FAERS Safety Report 4559712-1 (Version None)
Quarter: 2005Q1

REPORT INFORMATION
  Report Type: 
  Country: None (occurrence: None)
  Receive Date: 20050114
  Receipt Date: 20040904
  Transmission Date: 20050727
  Serious: Yes (Hospitalization, Other)
  Sender: FDA-Public Use
  Company Number: FEI2004-1026

PATIENT
  Age: 33 Year
  Sex: Female
  Weight: 60.3284 kg

DRUGS (1)
  1. INTRAUTERINE COPPER CONTRACEPTIVE [Suspect]
     Indication: CONTRACEPTION
     Dosage: INTRA-UTERINE
     Route: 015
     Dates: start: 20030331, end: 20040907

REACTIONS (5)
  - ABDOMINAL PAIN [None]
  - ABDOMINAL PAIN LOWER [None]
  - LARGE INTESTINE PERFORATION [None]
  - UNINTENDED PREGNANCY [None]
  - UTERINE PERFORATION [None]
